FAERS Safety Report 8359485-0 (Version None)
Quarter: 2012Q2

REPORT INFORMATION
  Report Type: 
  Country: None (occurrence: None)
  Receive Date: 20120515
  Receipt Date: 20120503
  Transmission Date: 20120825
  Serious: Yes (Hospitalization, Other)
  Sender: FDA-Public Use
  Company Number: BR-ELI_LILLY_AND_COMPANY-BR201203004133

PATIENT
  Sex: Female

DRUGS (2)
  1. HUMALOG [Suspect]
     Indication: TYPE 2 DIABETES MELLITUS
     Dosage: UNK, UNKNOWN
     Route: 058
  2. LANTUS [Concomitant]
     Dosage: UNK, UNKNOWN
     Route: 065

REACTIONS (11)
  - FOOT DEFORMITY [None]
  - NEUROPATHY PERIPHERAL [None]
  - HYPERGLYCAEMIA [None]
  - WOUND INFECTION [None]
  - DRUG DOSE OMISSION [None]
  - ERYSIPELAS [None]
  - DRUG INEFFECTIVE [None]
  - FOOT AMPUTATION [None]
  - RENAL FAILURE [None]
  - EXPIRED DRUG ADMINISTERED [None]
  - ARTHROPATHY [None]
